FAERS Safety Report 19734096 (Version 1)
Quarter: 2021Q3

REPORT INFORMATION
  Report Type: Other
  Country: CA (occurrence: CA)
  Receive Date: 20210824
  Receipt Date: 20210824
  Transmission Date: 20211014
  Serious: Yes (Other)
  Sender: FDA-Public Use
  Company Number: CA-CELLTRION INC.-2021CA011155

PATIENT

DRUGS (14)
  1. ATORVASTATIN [Concomitant]
     Active Substance: ATORVASTATIN
  2. RITUXIMAB (UNKNOWN) [Suspect]
     Active Substance: RITUXIMAB
     Indication: RHEUMATOID ARTHRITIS
     Dosage: UNK
     Route: 065
  3. ACETAMINOPHEN. [Concomitant]
     Active Substance: ACETAMINOPHEN
     Indication: PREMEDICATION
     Dosage: 650.0 MG
     Route: 048
  4. FUROSEMIDE. [Concomitant]
     Active Substance: FUROSEMIDE
  5. METHYLPREDNISOLONE. [Concomitant]
     Active Substance: METHYLPREDNISOLONE
     Indication: PREMEDICATION
     Dosage: 100.0 MG
     Route: 042
  6. PANTOLOC [PANTOPRAZOLE] [Concomitant]
     Active Substance: PANTOPRAZOLE SODIUM
  7. NEUPOGEN [Concomitant]
     Active Substance: FILGRASTIM
     Route: 042
  8. POLYSACCHARIDE?IRON COMPLEX [Concomitant]
     Active Substance: FERRIC POLYSACCHARIDE COMPLEX
  9. LANTUS [Concomitant]
     Active Substance: INSULIN GLARGINE
     Route: 058
  10. BISOPROLOL [Concomitant]
     Active Substance: BISOPROLOL
  11. DIPHENHYDRAMINE HYDROCHLORIDE. [Concomitant]
     Active Substance: DIPHENHYDRAMINE HYDROCHLORIDE
     Indication: PREMEDICATION
     Dosage: 50.0 MG
     Route: 048
  12. RITUXIMAB (UNKNOWN) [Suspect]
     Active Substance: RITUXIMAB
     Indication: FELTY^S SYNDROME
     Dosage: 1000.0 MG
     Route: 042
  13. CANDESARTAN. [Concomitant]
     Active Substance: CANDESARTAN
  14. NOVORAPID [Concomitant]
     Active Substance: INSULIN ASPART
     Route: 058

REACTIONS (4)
  - Off label use [Unknown]
  - Hepatic cancer [Unknown]
  - Intentional product use issue [Unknown]
  - Interstitial lung disease [Unknown]
